FAERS Safety Report 8604989-6 (Version None)
Quarter: 2012Q3

REPORT INFORMATION
  Report Type: 
  Country: None (occurrence: None)
  Receive Date: 20120820
  Receipt Date: 20120814
  Transmission Date: 20120928
  Serious: Yes (Other)
  Sender: FDA-Public Use
  Company Number: IT-PFIZER INC-2012200760

PATIENT
  Age: 35 Year
  Sex: Female

DRUGS (1)
  1. XANAX [Suspect]
     Dosage: 8 DF, TOTAL
     Route: 048
     Dates: start: 20120716, end: 20120716

REACTIONS (3)
  - DRUG ABUSE [None]
  - ALCOHOL ABUSE [None]
  - DEPRESSED MOOD [None]
